FAERS Safety Report 20782889 (Version 5)
Quarter: 2025Q2

REPORT INFORMATION
  Report Type: Report from Study
  Country: CA (occurrence: CA)
  Receive Date: 20220504
  Receipt Date: 20250411
  Transmission Date: 20250716
  Serious: Yes (Disabling, Other)
  Sender: UCB
  Company Number: CA-UCBSA-2022017847

PATIENT
  Sex: Female

DRUGS (2)
  1. LACOSAMIDE [Suspect]
     Active Substance: LACOSAMIDE
     Indication: Status epilepticus
     Dosage: 200 MILLIGRAM, 2X/DAY (BID)
     Route: 048
     Dates: start: 20160101
  2. LACOSAMIDE [Suspect]
     Active Substance: LACOSAMIDE
     Indication: Off label use

REACTIONS (11)
  - Seizure [Unknown]
  - Cognitive disorder [Unknown]
  - Loss of personal independence in daily activities [Not Recovered/Not Resolved]
  - Brain injury [Unknown]
  - Brain operation [Unknown]
  - Memory impairment [Not Recovered/Not Resolved]
  - Dysphemia [Unknown]
  - Head injury [Unknown]
  - Anxiety [Unknown]
  - Stress [Unknown]
  - Off label use [Unknown]
